FAERS Safety Report 8344906-X (Version None)
Quarter: 2012Q2

REPORT INFORMATION
  Report Type: 
  Country: None (occurrence: None)
  Receive Date: 20120508
  Receipt Date: 20120503
  Transmission Date: 20120825
  Serious: Yes (Hospitalization, Other)
  Sender: FDA-Public Use
  Company Number: PHHY2011DE49982

PATIENT
  Sex: Female
  Weight: 65 kg

DRUGS (5)
  1. PROCHLORPERAZINE [Concomitant]
     Indication: PAIN
     Dosage: 30 MG, DAILY
     Route: 048
     Dates: start: 20110329
  2. METAMIZOLE [Concomitant]
     Indication: PAIN
     Dosage: 500 MG, UNK
     Route: 048
     Dates: start: 20110329, end: 20110507
  3. ZOMETA [Suspect]
     Indication: BONE DISORDER
     Dosage: 4 MG, EVERY 4 WEEKS
     Route: 042
     Dates: start: 20110106, end: 20111117
  4. TRASTUZUMAB [Concomitant]
     Dosage: UNK
     Dates: start: 20080201
  5. IBUPROFEN TABLETS [Concomitant]
     Indication: PAIN
     Dosage: 600 MG, DAILY
     Route: 048
     Dates: start: 20110329

REACTIONS (5)
  - GENERAL PHYSICAL HEALTH DETERIORATION [None]
  - BLOOD CREATININE INCREASED [None]
  - RENAL FAILURE [None]
  - FALL [None]
  - FEMUR FRACTURE [None]
